FAERS Safety Report 20758571 (Version 3)
Quarter: 2022Q3

REPORT INFORMATION
  Report Type: Report from Study
  Country: US (occurrence: US)
  Receive Date: 20220427
  Receipt Date: 20220710
  Transmission Date: 20221027
  Serious: Yes (Other)
  Sender: FDA-Public Use
  Company Number: US-ALXN-A202204894

PATIENT
  Age: 38 Year
  Sex: Female

DRUGS (1)
  1. STRENSIQ [Suspect]
     Active Substance: ASFOTASE ALFA
     Indication: Hypophosphatasia
     Dosage: UNK
     Route: 065

REACTIONS (12)
  - Rash [Recovered/Resolved]
  - Urticaria [Recovered/Resolved]
  - Erythema [Unknown]
  - Palpitations [Unknown]
  - Spinal disorder [Unknown]
  - Dizziness [Unknown]
  - Chest pain [Unknown]
  - Speech disorder [Unknown]
  - Nausea [Unknown]
  - Retching [Unknown]
  - Muscle spasms [Unknown]
  - Muscle tightness [Unknown]

NARRATIVE: CASE EVENT DATE: 20220420
